FAERS Safety Report 10192066 (Version 1)
Quarter: 2014Q2

REPORT INFORMATION
  Report Type: Spontaneous
  Country: CN (occurrence: CN)
  Receive Date: 20140523
  Receipt Date: 20140523
  Transmission Date: 20141212
  Serious: Yes (Other)
  Sender: FDA-Public Use
  Company Number: CN-JNJFOC-20140514157

PATIENT
  Age: 75 Year
  Sex: Male

DRUGS (2)
  1. FENTANYL TRANSDERMAL SYSTEM [Suspect]
     Indication: CANCER PAIN
     Dosage: 16.8 MG
     Route: 062
  2. MORPHINE [Suspect]
     Indication: CANCER PAIN
     Route: 065

REACTIONS (5)
  - Overdose [Unknown]
  - Miosis [Recovered/Resolved]
  - Respiratory depression [Recovering/Resolving]
  - Coma [Recovering/Resolving]
  - Temperature regulation disorder [Unknown]
